FAERS Safety Report 4564980-6 (Version None)
Quarter: 2005Q1

REPORT INFORMATION
  Report Type: 
  Country: None (occurrence: None)
  Receive Date: 20050131
  Receipt Date: 20050120
  Transmission Date: 20050727
  Serious: Yes (Hospitalization)
  Sender: FDA-Public Use
  Company Number: US-JNJFOC-20050105820

PATIENT
  Age: 60 Year
  Sex: Female
  Weight: 58.97 kg

DRUGS (4)
  1. LEVAQUIN [Suspect]
     Indication: BRONCHITIS
     Route: 049
  2. PREDNISONE [Concomitant]
  3. AMIBID [Concomitant]
  4. AMBIEN [Concomitant]

REACTIONS (2)
  - AMNESIA [None]
  - CONVULSION [None]
